FAERS Safety Report 5292138-4 (Version None)
Quarter: 2007Q2

REPORT INFORMATION
  Report Type: 
  Country: None (occurrence: None)
  Receive Date: 20070410
  Receipt Date: 20070410
  Transmission Date: 20071010
  Serious: Yes (Other)
  Sender: FDA-Public Use
  Company Number: US-GLAXOSMITHKLINE-A0646336A

PATIENT
  Sex: Female

DRUGS (1)
  1. SENSODYNE TARTAR CONTROL PLUS WHITENING TOOTHPASTE [Suspect]

REACTIONS (3)
  - ORAL MUCOSA ATROPHY [None]
  - ORAL MUCOSAL DISCOLOURATION [None]
  - ORAL MUCOSAL EXFOLIATION [None]
